FAERS Safety Report 13186211 (Version 1)
Quarter: 2017Q1

REPORT INFORMATION
  Report Type: Spontaneous
  Country: US (occurrence: US)
  Receive Date: 20170204
  Receipt Date: 20170204
  Transmission Date: 20170428
  Serious: No
  Sender: FDA-Public Use
  Company Number: US-B.I. PHARMACEUTICALS,INC./RIDGEFIELD-2017-BI-005296

PATIENT
  Age: 69 Year
  Sex: Female

DRUGS (1)
  1. SPIOLTO [Suspect]
     Active Substance: OLODATEROL HYDROCHLORIDE\TIOTROPIUM BROMIDE MONOHYDRATE
     Indication: CHRONIC OBSTRUCTIVE PULMONARY DISEASE
     Dosage: 2 INHALATION 1 TIME DAILY;  FORM STRENGTH: 2.5 MCG; FORMULATION: INHALATION SPRAY? ADMINISTRATION CO
     Route: 055
     Dates: start: 20160408

REACTIONS (6)
  - Rhinorrhoea [Unknown]
  - Cough [Unknown]
  - Dyspnoea [Unknown]
  - Back pain [Unknown]
  - Nasal congestion [Unknown]
  - Upper-airway cough syndrome [Unknown]

NARRATIVE: CASE EVENT DATE: 20161228
